FAERS Safety Report 12501649 (Version 1)
Quarter: 2016Q2

REPORT INFORMATION
  Report Type: Spontaneous
  Country: IT (occurrence: IT)
  Receive Date: 20160627
  Receipt Date: 20160627
  Transmission Date: 20160815
  Serious: Yes (Other)
  Sender: FDA-Public Use
  Company Number: IT-BAYER-2016-122395

PATIENT
  Age: 52 Year
  Sex: Male

DRUGS (1)
  1. ULTRAVIST [Suspect]
     Active Substance: IOPROMIDE
     Indication: ANGIOGRAM
     Dosage: 120 ML, ONCE

REACTIONS (3)
  - Azotaemia [None]
  - Blood creatine increased [None]
  - Sialoadenitis [Recovered/Resolved]
